FAERS Safety Report 18508427 (Version 3)
Quarter: 2021Q4

REPORT INFORMATION
  Report Type: Spontaneous
  Country: PK (occurrence: PK)
  Receive Date: 20201116
  Receipt Date: 20211117
  Transmission Date: 20220303
  Serious: Yes (Other)
  Sender: FDA-Public Use
  Company Number: PK-PFIZER INC-2020181370

PATIENT
  Age: 59 Year
  Sex: Male

DRUGS (28)
  1. ENBREL [Suspect]
     Active Substance: ETANERCEPT
     Indication: Spondyloarthropathy
     Dosage: 50 MG, ONCE WEEKLY
     Route: 058
     Dates: start: 202004
  2. ENBREL [Suspect]
     Active Substance: ETANERCEPT
     Dosage: 50 MG, EVERY 10 DAYS
     Route: 058
     Dates: start: 2020
  3. ENBREL [Suspect]
     Active Substance: ETANERCEPT
     Dosage: 50 MG, ONCE EVERY WEEK TO 10 DAYS
     Route: 058
     Dates: start: 20200504
  4. CONCORD 693 [Concomitant]
     Dosage: 5 MG, 1X/DAY
     Dates: start: 2013
  5. XCEPT [Concomitant]
     Dosage: 15 MILLIGRAM
     Route: 065
     Dates: start: 2017
  6. SERT [Concomitant]
     Dosage: 50 MG, DAILY
     Route: 065
     Dates: start: 2020
  7. FOLIC ACID [Concomitant]
     Active Substance: FOLIC ACID
     Dosage: 5 MG, MON TUE WED, EVERY SATURDAY AND SUNDAY TO CONTINUE
     Route: 065
     Dates: start: 2019
  8. FOLIC ACID [Concomitant]
     Active Substance: FOLIC ACID
     Dosage: 5 MG, MON TUE. CONTINUE EVERY SATURDAY AND SUNDAY
     Route: 065
  9. SALAZODINE [Concomitant]
     Dosage: 500MG 2+2 MORNING AND EVENING TO CONTINUE
     Route: 065
  10. SALAZODINE [Concomitant]
     Dosage: 1+0+1 (500 MG) (AS REPORTED)
  11. SALAZODINE [Concomitant]
     Dosage: 500 MG, 1+1. CONTINUE 1 IN MORNING+ 1 IN EVENING
  12. PANADOL [Concomitant]
     Active Substance: ACETAMINOPHEN
     Indication: Pain
     Dosage: USE THIS 2+2+2 -- 2 MORNING + 2 AFTERNOON + 2 EVENING IF PAIN
     Route: 065
  13. PANADOL [Concomitant]
     Active Substance: ACETAMINOPHEN
     Dosage: SOS (AS REPORTED)
     Route: 065
  14. STARCOX [Concomitant]
     Indication: Pain
     Dosage: 60 MG, 1X/DAY
     Route: 065
  15. STARCOX [Concomitant]
     Dosage: 120 MG, 1X/DAY
     Route: 065
  16. SUNVITE [Concomitant]
     Dosage: UNK, (1 INJECTION MIX WITH WATER AND DRINK, REPEAT AFTER 4 MONTHS)
     Route: 065
  17. SUNVITE [Concomitant]
     Dosage: 1 INJECTION MIX WITH WATER AND DRINK, REPEAT AFTER 4 MONTHS
     Route: 065
  18. SUNVITE [Concomitant]
     Dosage: 1 IN 2 MONTHS
  19. SUNVITE [Concomitant]
     Dosage: 1 INJ IN 4 MONTHS
  20. SUNVITE [Concomitant]
     Dosage: 1 INJECTIONS. TAKE IT WITH MILK OR WATER, DRINK THE INJECTION AFTER EVERY 4 MONTHS
  21. VOLTRAL [DICLOFENAC SODIUM] [Concomitant]
     Indication: Pain
     Dosage: 100 MG, 1X/DAY
     Route: 065
  22. RISEK [OMEPRAZOLE] [Concomitant]
     Indication: Abdominal discomfort
     Dosage: 40 MG BEFORE BREAKFAST IF TAKING STRONG PAINKILLER, WITH PAIN MEDICINE OR IN CASE OF STOMACH PROBLEM
     Route: 065
  23. CALVAN [Concomitant]
     Dosage: ONE DAILY
     Route: 065
  24. IRBESARTAN [Concomitant]
     Active Substance: IRBESARTAN
     Indication: Hypotension
     Dosage: 150 MG
     Route: 065
  25. NUBEROL [Concomitant]
     Dosage: UNK
  26. ZEE [ASCORBIC ACID] [Concomitant]
     Dosage: UNK
  27. ZEEGAP [Concomitant]
     Dosage: 25 MG AT NIGHT
  28. SULFASALAZINE [Concomitant]
     Active Substance: SULFASALAZINE
     Dosage: 500MG 2+2 MORNING AND EVENING TO CONTINUE

REACTIONS (6)
  - Condition aggravated [Unknown]
  - Blood pressure increased [Unknown]
  - Heart rate increased [Unknown]
  - Off label use [Unknown]
  - Rash [Unknown]
  - COVID-19 [Recovered/Resolved]

NARRATIVE: CASE EVENT DATE: 20200101
